FAERS Safety Report 17376790 (Version 1)
Quarter: 2020Q1

REPORT INFORMATION
  Report Type: Report from Study
  Country: US (occurrence: US)
  Receive Date: 20200206
  Receipt Date: 20200206
  Transmission Date: 20200409
  Serious: Yes (Other)
  Sender: FDA-Public Use
  Company Number: US-JNJFOC-20200152066

PATIENT
  Age: 46 Year
  Sex: Female

DRUGS (1)
  1. SIMPONI [Suspect]
     Active Substance: GOLIMUMAB
     Indication: RHEUMATOID ARTHRITIS
     Route: 058
     Dates: start: 20170825

REACTIONS (4)
  - Knee operation [Not Recovered/Not Resolved]
  - Foot operation [Unknown]
  - Sinusitis [Unknown]
  - Ear infection [Unknown]

NARRATIVE: CASE EVENT DATE: 2019
